FAERS Safety Report 8533327-2 (Version None)
Quarter: 2012Q3

REPORT INFORMATION
  Report Type: 
  Country: None (occurrence: None)
  Receive Date: 20120724
  Receipt Date: 20120629
  Transmission Date: 20120928
  Serious: Yes (Hospitalization, Other)
  Sender: FDA-Public Use
  Company Number: CA-SANOFI-AVENTIS-200515248GDDC

PATIENT
  Age: 68 Year
  Sex: Male

DRUGS (8)
  1. ATENOLOL [Concomitant]
     Indication: HYPERTENSION
     Route: 048
  2. PLACEBO [Suspect]
     Dosage: DOSE AS USED: UNK
     Dates: start: 20040812
  3. ENALAPRIL MALEATE [Concomitant]
     Indication: HYPERTENSION
  4. OPTIPEN [Suspect]
     Indication: DIABETES MELLITUS
  5. ACETYLSALICYLIC ACID SRT [Concomitant]
     Indication: THROMBOSIS PROPHYLAXIS
  6. ISOSORBIDE DINITRATE [Concomitant]
     Indication: ANGINA PECTORIS
  7. LANTUS [Suspect]
     Indication: DIABETES MELLITUS
     Route: 058
     Dates: start: 20040812
  8. SIMVASTATIN [Concomitant]

REACTIONS (1)
  - ANGINA UNSTABLE [None]
